FAERS Safety Report 22381912 (Version 1)
Quarter: 2023Q2

REPORT INFORMATION
  Report Type: Spontaneous
  Country: US (occurrence: PR)
  Receive Date: 20230530
  Receipt Date: 20230530
  Transmission Date: 20230722
  Serious: Yes (Hospitalization)
  Sender: FDA-Public Use
  Company Number: US-BRISTOL-MYERS SQUIBB COMPANY-2023-074588

PATIENT
  Age: 64 Year
  Sex: Female
  Weight: 70.76 kg

DRUGS (4)
  1. ORENCIA [Suspect]
     Active Substance: ABATACEPT
     Indication: Rheumatoid arthritis
     Dosage: DOSE : 125 MG;     FREQ : 1 PER WEEK
     Route: 058
     Dates: start: 2021, end: 20230517
  2. TIROSTAT [Concomitant]
     Indication: Product used for unknown indication
  3. SINTROM [Concomitant]
     Active Substance: ACENOCOUMAROL
     Indication: Product used for unknown indication
  4. CLONAZEPAM [Concomitant]
     Active Substance: CLONAZEPAM
     Indication: Product used for unknown indication

REACTIONS (1)
  - Back pain [Not Recovered/Not Resolved]

NARRATIVE: CASE EVENT DATE: 20230521
